FAERS Safety Report 22351890 (Version 1)
Quarter: 2023Q2

REPORT INFORMATION
  Report Type: Spontaneous
  Country: US (occurrence: None)
  Receive Date: 20230522
  Receipt Date: 20230522
  Transmission Date: 20230721
  Serious: Yes (Other)
  Sender: FDA-Public Use
  Company Number: 2023A116036

PATIENT
  Age: 78 Year
  Sex: Female

DRUGS (1)
  1. FARXIGA [Suspect]
     Active Substance: DAPAGLIFLOZIN PROPANEDIOL
     Route: 048

REACTIONS (9)
  - Pain [Unknown]
  - Cholecystitis [Unknown]
  - Renal atrophy [Unknown]
  - Chronic kidney disease [Unknown]
  - White blood cell count increased [Unknown]
  - Infection [Unknown]
  - Hydronephrosis [Unknown]
  - Splenic calcification [Unknown]
  - Laboratory test abnormal [Unknown]

NARRATIVE: CASE EVENT DATE: 20220101
